FAERS Safety Report 10355348 (Version 2)
Quarter: 2014Q3

REPORT INFORMATION
  Report Type: Spontaneous
  Country: IT (occurrence: IT)
  Receive Date: 20140731
  Receipt Date: 20140922
  Transmission Date: 20150326
  Serious: Yes (Other)
  Sender: FDA-Public Use
  Company Number: IT-PFIZER INC-2014210350

PATIENT
  Age: 67 Year
  Sex: Female
  Weight: 55 kg

DRUGS (4)
  1. SUTENT [Suspect]
     Active Substance: SUNITINIB MALATE
     Indication: RENAL CANCER
     Dosage: 50 MG, 1X/DAY
     Route: 048
     Dates: start: 20140424, end: 20140603
  2. EUTIROX [Concomitant]
     Active Substance: LEVOTHYROXINE SODIUM
     Dosage: UNK
  3. SUTENT [Suspect]
     Active Substance: SUNITINIB MALATE
     Dosage: 37.5 MG, 1X/DAY
     Route: 048
     Dates: end: 20140709
  4. EN [Concomitant]
     Active Substance: DELORAZEPAM
     Dosage: UNK

REACTIONS (1)
  - Pelvic venous thrombosis [Unknown]

NARRATIVE: CASE EVENT DATE: 20140709
